FAERS Safety Report 5473019-X (Version None)
Quarter: 2007Q4

REPORT INFORMATION
  Report Type: 
  Country: None (occurrence: None)
  Receive Date: 20071001
  Receipt Date: 20070220
  Transmission Date: 20080405
  Serious: No
  Sender: FDA-Public Use
  Company Number: US-ASTRAZENECA-2007UW03303

PATIENT
  Sex: Female

DRUGS (1)
  1. ARIMIDEX [Suspect]

REACTIONS (1)
  - PNEUMONIA [None]
